FAERS Safety Report 9330224 (Version 1)
Quarter: 2013Q2

REPORT INFORMATION
  Report Type: Spontaneous
  Country: TR (occurrence: TR)
  Receive Date: 20130604
  Receipt Date: 20130604
  Transmission Date: 20140414
  Serious: Yes (Life-Threatening)
  Sender: FDA-Public Use
  Company Number: TR-ABBOTT-13X-161-1097631-00

PATIENT
  Age: 31 Year
  Sex: Female

DRUGS (7)
  1. KLACID [Suspect]
     Indication: ASTHMA
     Route: 042
     Dates: start: 20130513, end: 20130514
  2. NEVOFAM-L [Concomitant]
     Indication: PRODUCT USED FOR UNKNOWN INDICATION
     Route: 042
     Dates: start: 20130513
  3. TEOBAG [Concomitant]
     Indication: PRODUCT USED FOR UNKNOWN INDICATION
     Route: 042
     Dates: start: 20130513
  4. VENTOLIN NEBULES [Concomitant]
     Indication: PRODUCT USED FOR UNKNOWN INDICATION
     Route: 055
     Dates: start: 20130513
  5. ZESPIRA [Concomitant]
     Indication: PRODUCT USED FOR UNKNOWN INDICATION
     Dosage: UNIT DOSE: 1X1/DAY
     Dates: start: 20130513
  6. PANTO [Concomitant]
     Indication: PRODUCT USED FOR UNKNOWN INDICATION
     Dates: start: 20130513
  7. KLAMER [Concomitant]
     Indication: PRODUCT USED FOR UNKNOWN INDICATION
     Dates: start: 20130513

REACTIONS (4)
  - Dyspnoea [Recovered/Resolved]
  - Tachycardia [Recovered/Resolved]
  - Hypertension [Recovered/Resolved]
  - Agitation [Recovered/Resolved]
